FAERS Safety Report 4355004-4 (Version None)
Quarter: 2004Q2

REPORT INFORMATION
  Report Type: 
  Country: None (occurrence: None)
  Receive Date: 20040504
  Receipt Date: 20040421
  Transmission Date: 20050107
  Serious: Yes (Hospitalization)
  Sender: FDA-Public Use
  Company Number: 2004024254

PATIENT
  Age: 56 Year
  Sex: Male
  Weight: 84 kg

DRUGS (9)
  1. NEURONTIN [Suspect]
     Indication: POLYNEUROPATHY
     Dosage: ORAL
     Route: 048
  2. METOPROLOL SUCCINATE [Concomitant]
  3. CALCIUM ACETATE (CALCIUM ACETATE) [Concomitant]
  4. SEVELAMER HYDROCHLORIDE (SEVELAMER HYDROCHLORIDE) [Concomitant]
  5. ALFACALCIDOL (ALFACALCIDOL) [Concomitant]
  6. COLECALCIFEROL (COLECALCIFEROL) [Concomitant]
  7. MADOPAR (BENSERAZIDE HYDROCHLORIDE, LEVODOPA) [Concomitant]
  8. FLUNITRAZEPAM (FLUNITRAZEPAM) [Concomitant]
  9. PHENPROCOUMON (PHENPROCOUMON) [Concomitant]

REACTIONS (2)
  - HYPERKERATOSIS [None]
  - SCLERODERMA [None]
